FAERS Safety Report 12265737 (Version 1)
Quarter: 2016Q2

REPORT INFORMATION
  Report Type: Spontaneous
  Country: DE (occurrence: DE)
  Receive Date: 20160413
  Receipt Date: 20160413
  Transmission Date: 20160815
  Serious: Yes (Hospitalization)
  Sender: FDA-Public Use
  Company Number: DE-JUBILANT CADISTA PHARMACEUTICALS-2016JUB00136

PATIENT
  Age: 54 Year
  Sex: Female

DRUGS (5)
  1. IPILIMUMAB [Concomitant]
     Active Substance: IPILIMUMAB
     Indication: METASTASIS
     Route: 065
  2. METHYLPREDNISOLONE. [Suspect]
     Active Substance: METHYLPREDNISOLONE
     Indication: DIARRHOEA
     Route: 065
  3. INTERFERON [Concomitant]
     Active Substance: INTERFERON
     Indication: MALIGNANT MELANOMA
     Route: 065
  4. METHYLPREDNISOLONE. [Suspect]
     Active Substance: METHYLPREDNISOLONE
     Indication: ADVERSE DRUG REACTION
  5. METHYLPREDNISOLONE. [Suspect]
     Active Substance: METHYLPREDNISOLONE
     Indication: PYREXIA

REACTIONS (2)
  - Rotavirus infection [Recovering/Resolving]
  - Gastrointestinal haemorrhage [Recovering/Resolving]
